FAERS Safety Report 13493221 (Version 1)
Quarter: 2017Q2

REPORT INFORMATION
  Report Type: Spontaneous
  Country: US (occurrence: US)
  Receive Date: 20170427
  Receipt Date: 20170427
  Transmission Date: 20170830
  Serious: No
  Sender: FDA-Public Use
  Company Number: US-ROCHE-1318758

PATIENT
  Sex: Male

DRUGS (9)
  1. ERIVEDGE [Suspect]
     Active Substance: VISMODEGIB
     Indication: BASAL CELL CARCINOMA
     Route: 048
     Dates: start: 20130505
  2. FLUNISOLIDE NASAL [Concomitant]
  3. FINASTERIDE. [Concomitant]
     Active Substance: FINASTERIDE
  4. INDOCIN [Concomitant]
     Active Substance: INDOMETHACIN
  5. FLOMAX [Concomitant]
     Active Substance: TAMSULOSIN HYDROCHLORIDE
  6. CIALIS [Concomitant]
     Active Substance: TADALAFIL
  7. IBUPROFEN. [Concomitant]
     Active Substance: IBUPROFEN
  8. CRANBERRY. [Concomitant]
     Active Substance: CRANBERRY
  9. ERIVEDGE [Suspect]
     Active Substance: VISMODEGIB
     Indication: SKIN CANCER

REACTIONS (3)
  - Fatigue [Unknown]
  - Constipation [Unknown]
  - Muscle spasms [Unknown]
